FAERS Safety Report 4713178-7 (Version None)
Quarter: 2005Q3

REPORT INFORMATION
  Report Type: 
  Country: None (occurrence: None)
  Receive Date: 20050712
  Receipt Date: 20050712
  Transmission Date: 20060218
  Serious: Yes (Other)
  Sender: FDA-Public Use
  Company Number: None

PATIENT
  Age: 18 Year
  Sex: Female
  Weight: 63.5036 kg

DRUGS (5)
  1. PROZAC [Suspect]
     Indication: ANXIETY
     Dosage: ONE PO QD  3-4 YEARS
     Route: 048
  2. PROZAC [Suspect]
     Indication: DEPRESSION
     Dosage: ONE PO QD  3-4 YEARS
     Route: 048
  3. PROZAC [Suspect]
     Indication: POSTPARTUM DEPRESSION
     Dosage: ONE PO QD  3-4 YEARS
     Route: 048
  4. PAXIL [Concomitant]
  5. ZOLOFT [Concomitant]

REACTIONS (1)
  - URTICARIA [None]
